FAERS Safety Report 7051572-2 (Version None)
Quarter: 2010Q4

REPORT INFORMATION
  Report Type: 
  Country: None (occurrence: None)
  Receive Date: 20101019
  Receipt Date: 20101013
  Transmission Date: 20110411
  Serious: Yes (Other)
  Sender: FDA-Public Use
  Company Number: BR-ROCHE-671306

PATIENT
  Sex: Female
  Weight: 38 kg

DRUGS (5)
  1. RIVOTRIL [Suspect]
     Indication: DEPRESSION
     Dosage: SECOND INDICATION: PANIC DISORDER
     Route: 048
     Dates: start: 20061201
  2. RIVOTRIL [Suspect]
     Dosage: AS NEEDED, IND: PANIC DISORDER CRISIS, ROUTE: UNDER TONGUE
     Route: 048
  3. RIVOTRIL [Suspect]
     Route: 048
     Dates: end: 20091112
  4. SYNTHROID [Suspect]
     Indication: HYPOTHYROIDISM
     Dosage: STRENGTH: 50 AND 75 UG / TABLET
     Route: 065
     Dates: start: 20090904
  5. NEOZINE [Suspect]
     Indication: ANXIETY
     Route: 065
     Dates: start: 20090101, end: 20090101

REACTIONS (1)
  - ABORTION THREATENED [None]
